FAERS Safety Report 11184857 (Version 1)
Quarter: 2015Q2

REPORT INFORMATION
  Report Type: Spontaneous
  Country: US (occurrence: None)
  Receive Date: 20150611
  Receipt Date: 20150611
  Transmission Date: 20150821
  Serious: Yes (Other)
  Sender: FDA-Public Use
  Company Number: None

PATIENT
  Age: 70 Year
  Sex: Male
  Weight: 80.74 kg

DRUGS (19)
  1. PRAZOSIN [Suspect]
     Active Substance: PRAZOSIN
     Indication: POST-TRAUMATIC STRESS DISORDER
     Route: 048
     Dates: start: 20150511, end: 20150511
  2. FLUOXETINE [Concomitant]
     Active Substance: FLUOXETINE\FLUOXETINE HYDROCHLORIDE
  3. GABAPENTIN. [Concomitant]
     Active Substance: GABAPENTIN
  4. CEPHALEXIN. [Concomitant]
     Active Substance: CEPHALEXIN
  5. DICYCLOMINE [Concomitant]
     Active Substance: DICYCLOMINE HYDROCHLORIDE
  6. FAMOTIDINE. [Concomitant]
     Active Substance: FAMOTIDINE
  7. LIBRIUM [Concomitant]
     Active Substance: CHLORDIAZEPOXIDE HYDROCHLORIDE
  8. IPRATROPIUM [Concomitant]
     Active Substance: IPRATROPIUM
  9. MIRTAZAPINE. [Concomitant]
     Active Substance: MIRTAZAPINE
  10. AMLODIPINE [Concomitant]
     Active Substance: AMLODIPINE BESYLATE
  11. IBUPROFEN. [Concomitant]
     Active Substance: IBUPROFEN
  12. NORCO [Concomitant]
     Active Substance: ACETAMINOPHEN\HYDROCODONE BITARTRATE
  13. ATORVASTATIN [Concomitant]
     Active Substance: ATORVASTATIN
  14. DOCUSATE [Concomitant]
     Active Substance: DOCUSATE
  15. LISINOPRIL. [Concomitant]
     Active Substance: LISINOPRIL
  16. PLAVIX [Concomitant]
     Active Substance: CLOPIDOGREL BISULFATE
  17. IMITREX [Concomitant]
     Active Substance: SUMATRIPTAN\SUMATRIPTAN SUCCINATE
  18. PRAZOSIN [Suspect]
     Active Substance: PRAZOSIN
     Indication: NIGHTMARE
     Route: 048
     Dates: start: 20150511, end: 20150511
  19. PANTOPRAZOLE [Concomitant]
     Active Substance: PANTOPRAZOLE SODIUM

REACTIONS (2)
  - Loss of consciousness [None]
  - Syncope [None]

NARRATIVE: CASE EVENT DATE: 20150511
